FAERS Safety Report 4557406-X (Version None)
Quarter: 2005Q1

REPORT INFORMATION
  Report Type: 
  Country: None (occurrence: None)
  Receive Date: 20050120
  Receipt Date: 20050113
  Transmission Date: 20050727
  Serious: Yes (Other)
  Sender: FDA-Public Use
  Company Number: FR-ABBOTT-05P-056-0286726-00

PATIENT
  Age: 14 Year
  Sex: Male

DRUGS (7)
  1. VALPROATE SODIUM [Suspect]
     Indication: EPILEPSY
     Dosage: 33 PERCENT
     Route: 050
     Dates: start: 20041101, end: 20041101
  2. VALPROATE SODIUM [Suspect]
     Route: 050
     Dates: start: 20041101
  3. RIFAMPICIN [Interacting]
     Indication: ARTHRODESIS
     Route: 050
     Dates: start: 20041101
  4. CIPROFLOXACIN [Concomitant]
     Indication: ARTHRODESIS
     Route: 050
     Dates: start: 20041101
  5. TOPIRAMATE [Concomitant]
     Indication: EPILEPSY
     Route: 050
  6. CLONAZEPAM [Concomitant]
     Indication: EPILEPSY
     Route: 050
  7. HYDROXYZINE HYDROCHLORIDE [Concomitant]
     Indication: DRUG USE FOR UNKNOWN INDICATION
     Route: 050

REACTIONS (3)
  - CONVULSION [None]
  - DRUG INTERACTION [None]
  - DRUG LEVEL BELOW THERAPEUTIC [None]
